FAERS Safety Report 5254969-6 (Version None)
Quarter: 2007Q1

REPORT INFORMATION
  Report Type: 
  Country: None (occurrence: None)
  Receive Date: 20070305
  Receipt Date: 20070223
  Transmission Date: 20070707
  Serious: Yes (Hospitalization)
  Sender: FDA-Public Use
  Company Number: US-AVENTIS-200710315GDDC

PATIENT
  Age: 69 Year
  Sex: Male
  Weight: 69.85 kg

DRUGS (7)
  1. TAXOTERE [Suspect]
     Route: 042
     Dates: start: 20061228, end: 20061228
  2. CISPLATIN [Suspect]
     Route: 042
     Dates: start: 20061228, end: 20061228
  3. FLUOROURACIL [Suspect]
     Dosage: DOSE: 1000 MG/M2 OVER 4 DAYS
  4. LISINOPRIL [Concomitant]
     Dosage: DOSE: UNK
  5. ASPIRIN [Concomitant]
  6. FLOMAX [Concomitant]
     Dosage: DOSE: UNK
  7. OXYCODONE HCL [Concomitant]
     Dosage: DOSE: 5 MG 4-6 HOURS PRN

REACTIONS (20)
  - ASTHENIA [None]
  - DEHYDRATION [None]
  - DIARRHOEA [None]
  - DYSPHAGIA [None]
  - DYSPNOEA [None]
  - ENTERITIS [None]
  - FEBRILE NEUTROPENIA [None]
  - GASTRITIS HAEMORRHAGIC [None]
  - HAEMATEMESIS [None]
  - HEPATIC FAILURE [None]
  - HYPOTENSION [None]
  - HYPOXIA [None]
  - MUCOSAL INFLAMMATION [None]
  - NAUSEA [None]
  - PAIN [None]
  - PANCYTOPENIA [None]
  - PNEUMONIA ASPIRATION [None]
  - RENAL FAILURE [None]
  - SYNCOPE [None]
  - VOMITING [None]
